FAERS Safety Report 9663213 (Version 1)
Quarter: 2013Q4

REPORT INFORMATION
  Report Type: Spontaneous
  Country: US (occurrence: US)
  Receive Date: 20131101
  Receipt Date: 20131101
  Transmission Date: 20140711
  Serious: Yes (Hospitalization)
  Sender: FDA-Public Use
  Company Number: US-BIOGENIDEC-2013BI104077

PATIENT
  Sex: Female

DRUGS (9)
  1. AVONEX [Suspect]
     Indication: MULTIPLE SCLEROSIS
     Route: 030
     Dates: start: 20130228
  2. AMBIEN [Concomitant]
  3. BUMETANIDE [Concomitant]
  4. DIAZEPAM [Concomitant]
  5. LISINOPRIL [Concomitant]
  6. RANITIDINE HCL [Concomitant]
  7. SYNTHROID [Concomitant]
  8. TRAMADOL HCL ER [Concomitant]
  9. VITAMIN D [Concomitant]

REACTIONS (2)
  - Lower limb fracture [Unknown]
  - Fall [Recovered/Resolved]
